FAERS Safety Report 8055695-0 (Version None)
Quarter: 2011Q4

REPORT INFORMATION
  Report Type: 
  Country: None (occurrence: None)
  Receive Date: 20111215
  Receipt Date: 20101206
  Transmission Date: 20120403
  Serious: Yes (Life-Threatening, Hospitalization, Disabling)
  Sender: FDA-Public Use
  Company Number: WAES 1012USA01280

PATIENT
  Age: 57 Year
  Sex: Male

DRUGS (5)
  1. LIPITOR [Concomitant]
  2. ISENTRESS [Suspect]
     Indication: HIV INFECTION
     Dosage: 400 MG/BID/PO
     Route: 048
     Dates: start: 20100401
  3. LISINOPRIL [Concomitant]
  4. METFORMIN HCL [Concomitant]
  5. MARINOL [Concomitant]

REACTIONS (1)
  - RHABDOMYOLYSIS [None]
